FAERS Safety Report 24338578 (Version 1)
Quarter: 2024Q3

REPORT INFORMATION
  Report Type: Spontaneous
  Country: MX (occurrence: MX)
  Receive Date: 20240919
  Receipt Date: 20240919
  Transmission Date: 20241016
  Serious: Yes (Death, Other)
  Sender: STRIDES
  Company Number: MX-STRIDES ARCOLAB LIMITED-2024SP011870

PATIENT
  Age: 71 Year
  Sex: Female

DRUGS (3)
  1. VALGANCICLOVIR HYDROCHLORIDE [Suspect]
     Active Substance: VALGANCICLOVIR HYDROCHLORIDE
     Indication: Cytomegalovirus chorioretinitis
     Dosage: 950 MILLIGRAM, BID
     Route: 048
  2. GANCICLOVIR [Suspect]
     Active Substance: GANCICLOVIR
     Indication: Cytomegalovirus chorioretinitis
     Dosage: 2 INTRAVITREAL INJECTIONS; 4 MG/0.1ML
  3. PREDNISOLONE ACETATE [Suspect]
     Active Substance: PREDNISOLONE ACETATE
     Indication: Immunosuppressant drug therapy
     Dosage: UNK
     Route: 061

REACTIONS (3)
  - Drug ineffective [Fatal]
  - Disease progression [Fatal]
  - Neutropenia [Unknown]
